FAERS Safety Report 5603768-1 (Version None)
Quarter: 2008Q1

REPORT INFORMATION
  Report Type: 
  Country: None (occurrence: None)
  Receive Date: 20080122
  Receipt Date: 20080111
  Transmission Date: 20080703
  Serious: Yes (Other)
  Sender: FDA-Public Use
  Company Number: 2007S1013565

PATIENT
  Age: 42 Year
  Sex: Female

DRUGS (4)
  1. CYCLOBENZAPRINE HYDROCHLORIDE [Suspect]
     Indication: MUSCLE SPASMS
     Dosage: 10 MG; AS NEEDED; ORAL
     Route: 048
     Dates: start: 20071001, end: 20071212
  2. VOLTAREN [Concomitant]
  3. SIMVASTATIN [Concomitant]
  4. SOMA [Concomitant]

REACTIONS (5)
  - DYSGEUSIA [None]
  - DYSPHASIA [None]
  - FACIAL PALSY [None]
  - INFLAMMATION [None]
  - TONGUE DISORDER [None]
